FAERS Safety Report 9231484 (Version 2)
Quarter: 2013Q2

REPORT INFORMATION
  Report Type: Spontaneous
  Country: US (occurrence: US)
  Receive Date: 20130415
  Receipt Date: 20130604
  Transmission Date: 20140414
  Serious: Yes (Other)
  Sender: FDA-Public Use
  Company Number: US-GLAXOSMITHKLINE-A1019920A

PATIENT
  Age: 65 Year
  Sex: Female

DRUGS (2)
  1. ADVAIR [Suspect]
     Indication: ASTHMA
     Dosage: 1PUFF TWICE PER DAY
     Route: 055
     Dates: start: 2009
  2. ALBUTEROL [Concomitant]
     Route: 055

REACTIONS (4)
  - Diabetes mellitus [Unknown]
  - Gastroenteritis norovirus [Unknown]
  - Malaise [Unknown]
  - Blood glucose increased [Unknown]
